FAERS Safety Report 23950809 (Version 1)
Quarter: 2024Q2

REPORT INFORMATION
  Report Type: Report from Study
  Country: US (occurrence: US)
  Receive Date: 20240607
  Receipt Date: 20240607
  Transmission Date: 20240716
  Serious: No
  Sender: FDA-Public Use
  Company Number: US-SPRINGWORKS THERAPEUTICS-SW-001462

PATIENT
  Sex: Female

DRUGS (3)
  1. NIROGACESTAT [Suspect]
     Active Substance: NIROGACESTAT
     Indication: Product used for unknown indication
     Dosage: 150 MILLIGRAM, BID
     Dates: start: 20240313
  2. NIROGACESTAT [Suspect]
     Active Substance: NIROGACESTAT
     Dosage: 150 MILLIGRAM, BID
  3. NIROGACESTAT [Suspect]
     Active Substance: NIROGACESTAT
     Dosage: UNK
     Dates: start: 20240507

REACTIONS (12)
  - Hot flush [Recovering/Resolving]
  - Vomiting [Recovering/Resolving]
  - Oligomenorrhoea [Not Recovered/Not Resolved]
  - Gastrointestinal infection [Recovered/Resolved]
  - Joint swelling [Recovering/Resolving]
  - Nausea [Recovered/Resolved]
  - Headache [Recovered/Resolved]
  - Diarrhoea [Recovering/Resolving]
  - Stomatitis [Recovering/Resolving]
  - Fatigue [Not Recovered/Not Resolved]
  - Amenorrhoea [Recovering/Resolving]
  - Product dose omission issue [Recovering/Resolving]
